FAERS Safety Report 23258784 (Version 2)
Quarter: 2023Q4

REPORT INFORMATION
  Report Type: Spontaneous
  Country: FR (occurrence: FR)
  Receive Date: 20231204
  Receipt Date: 20231228
  Transmission Date: 20240109
  Serious: Yes (Death, Hospitalization, Other)
  Sender: FDA-Public Use
  Company Number: FR-JNJFOC-20230753310

PATIENT
  Age: 66 Year
  Sex: Female
  Weight: 59 kg

DRUGS (3)
  1. TECVAYLI [Suspect]
     Active Substance: TECLISTAMAB-CQYV
     Indication: Plasma cell myeloma
     Route: 065
     Dates: start: 20230131
  2. TECVAYLI [Suspect]
     Active Substance: TECLISTAMAB-CQYV
     Route: 065
     Dates: end: 20230623
  3. TECVAYLI [Suspect]
     Active Substance: TECLISTAMAB-CQYV
     Dosage: LAST TECLISTAMAB INJECTION ON 23-SEP-2023
     Route: 065
     Dates: end: 20230923

REACTIONS (7)
  - Seizure [Fatal]
  - Pseudomonal sepsis [Unknown]
  - Enterobacter sepsis [Unknown]
  - Pneumonia pseudomonal [Unknown]
  - Cytomegalovirus infection reactivation [Unknown]
  - Abdominal wall haematoma [Unknown]
  - Off label use [Unknown]

NARRATIVE: CASE EVENT DATE: 20230101
